FAERS Safety Report 8903418 (Version 1)
Quarter: 2012Q4

REPORT INFORMATION
  Report Type: 
  Country: CA (occurrence: CA)
  Receive Date: 20121112
  Receipt Date: 20121112
  Transmission Date: 20130627
  Serious: Yes (Other)
  Sender: FDA-Public Use
  Company Number: CA-AMGEN-CANSP2012066111

PATIENT
  Age: 79 Year
  Sex: Female
  Weight: 66.82 kg

DRUGS (1)
  1. PROLIA [Suspect]
     Indication: OSTEOPOROSIS
     Dosage: UNK
     Dates: start: 20111013

REACTIONS (2)
  - Pancreaticoduodenectomy [Unknown]
  - Malaise [Unknown]
